FAERS Safety Report 16869290 (Version 1)
Quarter: 2019Q3

REPORT INFORMATION
  Report Type: Report from Study
  Country: PL (occurrence: PL)
  Receive Date: 20190930
  Receipt Date: 20190930
  Transmission Date: 20191005
  Serious: Yes (Hospitalization, Other)
  Sender: FDA-Public Use
  Company Number: PHHO2017PL001234

PATIENT
  Age: 82 Year
  Sex: Female
  Weight: 65 kg

DRUGS (7)
  1. POLFENON [Concomitant]
     Active Substance: PROPAFENONE HYDROCHLORIDE
     Indication: ATRIAL FIBRILLATION
     Dosage: 150 MG, BID
     Route: 048
     Dates: start: 20160516
  2. PRADAXA [Concomitant]
     Active Substance: DABIGATRAN ETEXILATE MESYLATE
     Indication: ATRIAL FIBRILLATION
     Dosage: 150 MG, BID
     Route: 048
     Dates: start: 20160405
  3. PLACEBO [Suspect]
     Active Substance: UNSPECIFIED INGREDIENT
     Indication: CARDIAC FAILURE
     Dosage: UNK
     Route: 048
     Dates: start: 20160803
  4. BETO ZK [Concomitant]
     Active Substance: METOPROLOL SUCCINATE
     Indication: ATRIAL FIBRILLATION
     Dosage: 95 MG, BID
     Route: 048
     Dates: start: 20160405
  5. TORAMIDE [Concomitant]
     Indication: CARDIAC FAILURE
     Dosage: 2.5 MG, QD
     Route: 065
     Dates: start: 20151201
  6. VALSARTAN. [Suspect]
     Active Substance: VALSARTAN
     Indication: CARDIAC FAILURE
     Dosage: 160 MG, BID
     Route: 048
     Dates: start: 20160803
  7. EUTHYROX [Suspect]
     Active Substance: LEVOTHYROXINE SODIUM
     Indication: HYPOTHYROIDISM
     Dosage: 50 UG, QD
     Route: 048
     Dates: start: 20160601

REACTIONS (2)
  - Atrial fibrillation [Unknown]
  - Atrial fibrillation [Recovered/Resolved]

NARRATIVE: CASE EVENT DATE: 20161205
